FAERS Safety Report 18230599 (Version 1)
Quarter: 2020Q3

REPORT INFORMATION
  Report Type: Spontaneous
  Country: FR (occurrence: FR)
  Receive Date: 20200904
  Receipt Date: 20200904
  Transmission Date: 20201103
  Serious: Yes (Other)
  Sender: FDA-Public Use
  Company Number: FR-TEVA-2020-FR-1821949

PATIENT
  Age: 67 Year
  Sex: Female
  Weight: 65 kg

DRUGS (5)
  1. VENLAFAXINE [Concomitant]
     Active Substance: VENLAFAXINE HYDROCHLORIDE
     Indication: DEPRESSION
     Dosage: 75MG
     Route: 048
  2. LEVOTHYROX 75 MICROGRAMMES, COMPRIME SECABLE [Concomitant]
     Active Substance: LEVOTHYROXINE SODIUM
     Indication: AUTOIMMUNE THYROIDITIS
     Dosage: 75MCG
     Route: 048
  3. CRESTOR [Concomitant]
     Active Substance: ROSUVASTATIN CALCIUM
     Indication: TYPE IIA HYPERLIPIDAEMIA
     Dosage: 1 DOSAGE FORMS
     Route: 048
  4. DOXORUBICINE [Suspect]
     Active Substance: DOXORUBICIN
     Indication: INVASIVE LOBULAR BREAST CARCINOMA
     Dosage: 60MG/M2
     Route: 042
     Dates: start: 20181005, end: 20190118
  5. OXAZEPAM. [Concomitant]
     Active Substance: OXAZEPAM
     Indication: DEPRESSION
     Dosage: 30MG
     Route: 048

REACTIONS (1)
  - Cardiac failure [Recovering/Resolving]

NARRATIVE: CASE EVENT DATE: 20190517
